FAERS Safety Report 5060186-5 (Version None)
Quarter: 2006Q3

REPORT INFORMATION
  Report Type: 
  Country: None (occurrence: None)
  Receive Date: 20060718
  Receipt Date: 20060629
  Transmission Date: 20061208
  Serious: Yes (Other)
  Sender: FDA-Public Use
  Company Number: FR200606004095

PATIENT
  Age: 23 Year
  Sex: Male
  Weight: 51 kg

DRUGS (6)
  1. SOMATROPIN (SOMATROPIN) VIAL [Suspect]
     Indication: HYPOPITUITARISM
     Dosage: 0.2 MG, DAILY (1/D), SUBCUTANEOUS
     Route: 058
     Dates: start: 20060522, end: 20060603
  2. LEVOTHYROXINE SODIUM [Concomitant]
  3. HYDROCORTISONE [Concomitant]
  4. ANDROTARDYL (TESTOSTERONE ENANTATE) [Concomitant]
  5. LAMICTAL [Concomitant]
  6. MINIRIN [Concomitant]

REACTIONS (3)
  - DRUG HYPERSENSITIVITY [None]
  - INJECTION SITE ANAESTHESIA [None]
  - INJECTION SITE PRURITUS [None]
